FAERS Safety Report 7496618-2 (Version None)
Quarter: 2011Q2

REPORT INFORMATION
  Report Type: 
  Country: None (occurrence: None)
  Receive Date: 20110523
  Receipt Date: 20110512
  Transmission Date: 20111010
  Serious: Yes (Disabling, Other)
  Sender: FDA-Public Use
  Company Number: US-ASTRAZENECA-2011SE11922

PATIENT
  Age: 71 Year
  Sex: Male

DRUGS (3)
  1. UNSPECIFIED PAIN MEDS [Concomitant]
  2. NAPROXEN SODIUM [Concomitant]
     Dates: start: 20050101
  3. CRESTOR [Suspect]
     Route: 048

REACTIONS (3)
  - ILEUS [None]
  - EXOSTOSIS [None]
  - INTERVERTEBRAL DISC PROTRUSION [None]
